FAERS Safety Report 9321535 (Version 1)
Quarter: 2013Q2

REPORT INFORMATION
  Report Type: Spontaneous
  Country: FR (occurrence: FR)
  Receive Date: 20130531
  Receipt Date: 20130531
  Transmission Date: 20140414
  Serious: Yes (Other)
  Sender: FDA-Public Use
  Company Number: FR-BRISTOL-MYERS SQUIBB COMPANY-17400375

PATIENT
  Age: 71 Year
  Sex: Male
  Weight: 84 kg

DRUGS (7)
  1. KOMBOGLYZE [Suspect]
     Indication: TYPE 2 DIABETES MELLITUS
     Route: 048
     Dates: start: 20130121, end: 20130210
  2. LANTUS [Concomitant]
     Indication: DIABETES MELLITUS
     Dates: start: 200910
  3. REPAGLINIDE [Concomitant]
     Indication: DIABETES MELLITUS
     Dates: start: 200910
  4. APROVEL [Concomitant]
     Indication: HYPERTENSION
     Dates: start: 200910
  5. INEGY [Concomitant]
     Indication: DYSLIPIDAEMIA
     Dosage: 1 DF= 10 MG/20 MG
     Dates: start: 200910
  6. TADENAN [Concomitant]
     Indication: PROSTATISM
  7. METFORMIN HCL [Concomitant]
     Indication: DIABETES MELLITUS
     Dates: end: 20130121

REACTIONS (2)
  - Back pain [Recovered/Resolved]
  - Pollakiuria [Recovered/Resolved]
